FAERS Safety Report 15781165 (Version 1)
Quarter: 2019Q1

REPORT INFORMATION
  Report Type: Spontaneous
  Country: RU (occurrence: RU)
  Receive Date: 20190102
  Receipt Date: 20190102
  Transmission Date: 20190417
  Serious: Yes (Other)
  Sender: FDA-Public Use
  Company Number: RU-SA-2018SA394583

PATIENT
  Age: 6 Year
  Sex: Male

DRUGS (4)
  1. FLUDARABINE PHOSPHATE. [Suspect]
     Active Substance: FLUDARABINE PHOSPHATE
     Indication: STEM CELL TRANSPLANT
     Dosage: 140 MG/M2/150MG/M2/1 MG/KG, QD
     Route: 041
  2. ALKERAN [Suspect]
     Active Substance: MELPHALAN
     Indication: STEM CELL TRANSPLANT
     Dosage: 140 MG/M2/150MG/M2/1 MG/KG, QD
     Route: 065
  3. THYMOGLOBULIN [Concomitant]
     Active Substance: LAPINE T-LYMPHOCYTE IMMUNE GLOBULIN
     Dosage: UNK
     Route: 065
  4. LEMTRADA [Suspect]
     Active Substance: ALEMTUZUMAB
     Indication: STEM CELL TRANSPLANT
     Dosage: 140 MG/M2/150MG/M2/1 MG/KG, QD
     Route: 041

REACTIONS (5)
  - Papilloma [Unknown]
  - Mucosal inflammation [Unknown]
  - Herpes zoster [Unknown]
  - Off label use [Unknown]
  - Neutropenia [Unknown]
